FAERS Safety Report 6409667-X (Version None)
Quarter: 2009Q4

REPORT INFORMATION
  Report Type: 
  Country: None (occurrence: None)
  Receive Date: 20091020
  Receipt Date: 20091020
  Transmission Date: 20100525
  Serious: Yes (Death)
  Sender: FDA-Public Use
  Company Number: None

PATIENT
  Age: 62 Year
  Sex: Male
  Weight: 95.2554 kg

DRUGS (1)
  1. GABAPENTIN [Suspect]
     Dosage: TWO CAPSULES THREE TIME A DAY
     Dates: start: 20081201, end: 20090720

REACTIONS (2)
  - GUN SHOT WOUND [None]
  - INTENTIONAL SELF-INJURY [None]
